FAERS Safety Report 8964964 (Version 2)
Quarter: 2012Q4

REPORT INFORMATION
  Report Type: 
  Country: US (occurrence: US)
  Receive Date: 20121213
  Receipt Date: 20121220
  Transmission Date: 20130627
  Serious: Yes (Other)
  Sender: FDA-Public Use
  Company Number: US-SANOFI-AVENTIS-2012SA090745

PATIENT
  Sex: Male

DRUGS (4)
  1. MULTAQ [Suspect]
     Indication: ATRIAL FIBRILLATION
     Route: 048
     Dates: start: 201210
  2. ATENOLOL [Suspect]
     Indication: HYPERTENSION
     Route: 065
  3. HYDROCHLOROTHIAZIDE [Suspect]
     Indication: HYPERTENSION
     Route: 065
  4. XARELTO [Suspect]
     Route: 065
     Dates: start: 2012, end: 2012

REACTIONS (4)
  - Atrial fibrillation [Unknown]
  - Bradycardia [Unknown]
  - Haematuria [Unknown]
  - Drug interaction [Unknown]
